FAERS Safety Report 13510126 (Version 1)
Quarter: 2017Q2

REPORT INFORMATION
  Report Type: Report from Study
  Country: JP (occurrence: JP)
  Receive Date: 20170503
  Receipt Date: 20170503
  Transmission Date: 20170830
  Serious: Yes (Hospitalization)
  Sender: FDA-Public Use
  Company Number: JP-ASTRAZENECA-2017SE45130

PATIENT
  Age: 24470 Day
  Sex: Female
  Weight: 61 kg

DRUGS (16)
  1. THYRADIN-S [Concomitant]
     Active Substance: LEVOTHYROXINE
     Dates: start: 20160902
  2. LOXOPROFEN [Concomitant]
     Active Substance: LOXOPROFEN
  3. MAGMITT [Concomitant]
     Active Substance: MAGNESIUM OXIDE
  4. CODEINE [Concomitant]
     Active Substance: CODEINE
     Dates: start: 20161208
  5. FASLODEX [Suspect]
     Active Substance: FULVESTRANT
     Indication: BREAST CANCER FEMALE
     Route: 042
     Dates: start: 20130305
  6. XYLOCAINE [Concomitant]
     Active Substance: LIDOCAINE HYDROCHLORIDE
  7. OLMETEC [Concomitant]
     Active Substance: OLMESARTAN MEDOXOMIL
     Route: 048
     Dates: start: 20130220
  8. REBAMIPIDE [Concomitant]
     Active Substance: REBAMIPIDE
  9. CELECOX [Concomitant]
     Active Substance: CELECOXIB
     Dates: start: 20160915
  10. BKM120 [Suspect]
     Active Substance: BUPARLISIB HYDROCHLORIDE
     Indication: BREAST CANCER FEMALE
     Route: 048
     Dates: start: 20130319, end: 20140818
  11. SODIUM PICOSULFATE [Concomitant]
     Active Substance: SODIUM PICOSULFATE
     Dates: start: 20160204
  12. FLUNITRAZEPAM [Concomitant]
     Active Substance: FLUNITRAZEPAM
  13. MUCOSAL [Concomitant]
     Dates: start: 20140206
  14. ELIQUIS [Concomitant]
     Active Substance: APIXABAN
     Dates: start: 20160721
  15. AZULENE SODIUM SULFONATE [Concomitant]
     Active Substance: SODIUM GUALENATE
     Dates: start: 20160915
  16. SPIRIVA [Concomitant]
     Active Substance: TIOTROPIUM BROMIDE MONOHYDRATE
     Dates: start: 20170221

REACTIONS (1)
  - Atrial fibrillation [Recovering/Resolving]

NARRATIVE: CASE EVENT DATE: 20170214
